FAERS Safety Report 25585353 (Version 2)
Quarter: 2025Q3

REPORT INFORMATION
  Report Type: Spontaneous
  Country: US (occurrence: US)
  Receive Date: 20250721
  Receipt Date: 20250801
  Transmission Date: 20251020
  Serious: No
  Sender: JOHNSON AND JOHNSON
  Company Number: US-JNJFOC-20250720989

PATIENT
  Sex: Female

DRUGS (4)
  1. SPRAVATO [Suspect]
     Active Substance: ESKETAMINE
     Indication: Product used for unknown indication
     Dates: start: 20250603, end: 20250606
  2. SPRAVATO [Suspect]
     Active Substance: ESKETAMINE
     Dates: start: 20250611
  3. SPRAVATO [Suspect]
     Active Substance: ESKETAMINE
     Dates: start: 20250613, end: 20250617
  4. SPRAVATO [Suspect]
     Active Substance: ESKETAMINE
     Dates: start: 20250701

REACTIONS (4)
  - Sedation [Unknown]
  - Dysuria [Unknown]
  - Micturition urgency [Unknown]
  - Off label use [Unknown]

NARRATIVE: CASE EVENT DATE: 20250601
